FAERS Safety Report 25943110 (Version 1)
Quarter: 2025Q4

REPORT INFORMATION
  Report Type: Spontaneous
  Country: US (occurrence: None)
  Receive Date: 20251020
  Receipt Date: 20251020
  Transmission Date: 20260117
  Serious: Yes (unspecified)
  Sender: FDA-CTU
  Company Number: None

PATIENT
  Age: 0 Year
  Sex: Female
  Weight: 76.5 kg

DRUGS (4)
  1. SILYMARIN CF SALICYLIC ACID ACNE TREATMENT [Suspect]
     Active Substance: SALICYLIC ACID
     Indication: Fat tissue increased
     Dosage: OTHER QUANTITY : 1 DROP(S);?
     Route: 061
     Dates: end: 20250925
  2. MAGNESIUM [Concomitant]
     Active Substance: MAGNESIUM
  3. VITAMIN D [Concomitant]
     Active Substance: VITAMIN D NOS
  4. VITAMIN K [Concomitant]
     Active Substance: PHYTONADIONE

REACTIONS (3)
  - Erythema [None]
  - Rash [None]
  - Pruritus [None]

NARRATIVE: CASE EVENT DATE: 19791128
